FAERS Safety Report 21170626 (Version 1)
Quarter: 2022Q3

REPORT INFORMATION
  Report Type: Other
  Country: GR (occurrence: GR)
  Receive Date: 20220804
  Receipt Date: 20220804
  Transmission Date: 20221027
  Serious: Yes (Life-Threatening, Hospitalization, Other)
  Sender: FDA-Public Use
  Company Number: GR-Prasco Laboratories-PRAS20220196

PATIENT
  Age: 60 Year
  Sex: Male

DRUGS (8)
  1. DEXAMETHASONE [Suspect]
     Active Substance: DEXAMETHASONE
     Indication: Plasma cell myeloma refractory
     Dosage: 20 MG
     Route: 048
     Dates: start: 202102
  2. VENETOCLAX [Suspect]
     Active Substance: VENETOCLAX
     Indication: Plasma cell myeloma refractory
     Dosage: 100 MG
     Route: 048
     Dates: start: 202102
  3. VENETOCLAX [Suspect]
     Active Substance: VENETOCLAX
     Dosage: DOSE ESCALATION TO 400 MG BY DAY 4
     Route: 048
  4. BORTEZOMIB [Suspect]
     Active Substance: BORTEZOMIB
     Indication: Plasma cell myeloma refractory
     Dosage: 1.3 MG/M2
     Route: 058
     Dates: start: 202102
  5. ALLOPURINOL [Concomitant]
     Active Substance: ALLOPURINOL
  6. ACYCLOVIR [Concomitant]
     Active Substance: ACYCLOVIR
  7. COTRIMOXAZOLE [Concomitant]
     Active Substance: SULFAMETHOXAZOLE\TRIMETHOPRIM
  8. omeprazole_ [Concomitant]

REACTIONS (6)
  - Hypocalcaemia [Recovered/Resolved]
  - Nausea [Recovered/Resolved]
  - Muscle spasms [Recovered/Resolved]
  - Paraesthesia oral [Recovered/Resolved]
  - Tetany [Recovered/Resolved]
  - Hypocalcaemic seizure [Recovered/Resolved]

NARRATIVE: CASE EVENT DATE: 20210201
